FAERS Safety Report 16363944 (Version 5)
Quarter: 2019Q3

REPORT INFORMATION
  Report Type: Spontaneous
  Country: US (occurrence: US)
  Receive Date: 20190528
  Receipt Date: 20190730
  Transmission Date: 20191004
  Serious: No
  Sender: FDA-Public Use
  Company Number: US-PFIZER INC-2019222996

PATIENT
  Age: 15 Year
  Sex: Male
  Weight: 43.9 kg

DRUGS (3)
  1. GENOTROPIN [Suspect]
     Active Substance: SOMATROPIN
     Indication: GROWTH DISORDER
     Dosage: UNK
     Dates: start: 201905
  2. GENOTROPIN [Suspect]
     Active Substance: SOMATROPIN
     Indication: GROWTH HORMONE DEFICIENCY
     Dosage: 1.4 MG, DAILY (AT NIGHT)
     Dates: start: 20190510
  3. AMOXICILLIN. [Concomitant]
     Active Substance: AMOXICILLIN
     Indication: EAR INFECTION
     Dosage: 50 MG, 2X/DAY
     Dates: start: 20190529

REACTIONS (4)
  - Injection site bruising [Not Recovered/Not Resolved]
  - Product dose omission [Unknown]
  - Incorrect dose administered [Unknown]
  - Poor quality device used [Unknown]

NARRATIVE: CASE EVENT DATE: 201906
